FAERS Safety Report 10404891 (Version 2)
Quarter: 2014Q4

REPORT INFORMATION
  Report Type: Report from Study
  Country: US (occurrence: US)
  Receive Date: 20140825
  Receipt Date: 20141020
  Transmission Date: 20150528
  Serious: Yes (Other)
  Sender: FDA-Public Use
  Company Number: US-BIOGENIDEC-2014BI082864

PATIENT
  Age: 48 Year
  Sex: Female

DRUGS (1)
  1. TYSABRI [Suspect]
     Active Substance: NATALIZUMAB
     Indication: MULTIPLE SCLEROSIS
     Route: 042
     Dates: start: 20140204

REACTIONS (8)
  - Infusion site bruising [Unknown]
  - Multiple sclerosis relapse [Recovered/Resolved]
  - Stress [Unknown]
  - Arthritis [Recovered/Resolved]
  - Nerve compression [Unknown]
  - Muscle twitching [Unknown]
  - Mental impairment [Not Recovered/Not Resolved]
  - Headache [Unknown]

NARRATIVE: CASE EVENT DATE: 2014
